FAERS Safety Report 7624244-0 (Version None)
Quarter: 2011Q3

REPORT INFORMATION
  Report Type: 
  Country: None (occurrence: None)
  Receive Date: 20110720
  Receipt Date: 20091208
  Transmission Date: 20111222
  Serious: Yes (Other)
  Sender: FDA-Public Use
  Company Number: DE-BAYER-201020364GPV

PATIENT
  Age: 27 Year
  Sex: Female

DRUGS (1)
  1. EXTAVIA [Suspect]
     Indication: MULTIPLE SCLEROSIS
     Route: 058

REACTIONS (10)
  - INFLUENZA LIKE ILLNESS [None]
  - DRUG INTOLERANCE [None]
  - INJECTION SITE PRURITUS [None]
  - DISTURBANCE IN ATTENTION [None]
  - LISTLESS [None]
  - INJECTION SITE ERYTHEMA [None]
  - BACK PAIN [None]
  - HYPOTONIA [None]
  - APATHY [None]
  - HEADACHE [None]
